FAERS Safety Report 23657491 (Version 1)
Quarter: 2024Q1

REPORT INFORMATION
  Report Type: Spontaneous
  Country: US (occurrence: US)
  Receive Date: 20240321
  Receipt Date: 20240321
  Transmission Date: 20240409
  Serious: No
  Sender: FDA-Public Use
  Company Number: US-PFIZER INC-202400059518

PATIENT
  Age: 5 Year
  Sex: Male
  Weight: 31.75 kg

DRUGS (11)
  1. GENOTROPIN [Suspect]
     Active Substance: SOMATROPIN
     Indication: Adrenogenital syndrome
     Dosage: 0.5 MG, INJECTION IN DIFFERENT PLACES, STOMACH AND BACK ARMS
     Dates: start: 2015
  2. HYDROCORTISONE [Concomitant]
     Active Substance: HYDROCORTISONE
     Indication: Adrenogenital syndrome
     Dosage: 5MG AT 8 AND 4, AND THEN 7.5MG AT BEDTIME
     Route: 048
  3. HYDROCORTISONE [Concomitant]
     Active Substance: HYDROCORTISONE
     Dosage: WHEN SICK HE TAKES 15MG THREE TIMES A DAY
  4. FLUDROCORTISONE [Concomitant]
     Active Substance: FLUDROCORTISONE
     Indication: Adrenogenital syndrome
     Dosage: 0.1MG TABLET ONCE A DAY
     Route: 048
  5. DEXMETHYLPHENIDATE [Concomitant]
     Active Substance: DEXMETHYLPHENIDATE
     Indication: Attention deficit hyperactivity disorder
     Dosage: 20MG CAPSULE ONCE A DAY
     Route: 048
  6. ANASTROZOLE [Concomitant]
     Active Substance: ANASTROZOLE
     Indication: Bone disorder
     Dosage: 1MG TABLET ONCE A DAY
     Route: 048
  7. SODIUM BICARBONATE [Concomitant]
     Active Substance: SODIUM BICARBONATE
     Indication: Renal disorder
     Dosage: 650MG TABLET TWICE A DAY
     Route: 048
  8. FERROUS SULFATE [Concomitant]
     Active Substance: FERROUS SULFATE
     Indication: Anaemia
     Dosage: 325MG TABLET TWICE A DAY
  9. DIALYVITE 800/ ULTRA D [Concomitant]
     Indication: Vitamin supplementation
     Dosage: TABLET EVERYDAY
     Route: 048
  10. SOLU-CORTEF [Concomitant]
     Active Substance: HYDROCORTISONE SODIUM SUCCINATE
     Indication: Illness
     Dosage: 75 MG
     Route: 030
  11. SOLU-CORTEF [Concomitant]
     Active Substance: HYDROCORTISONE SODIUM SUCCINATE
     Indication: Injury

REACTIONS (5)
  - Poor quality device used [Unknown]
  - Device power source issue [Unknown]
  - Off label use [Unknown]
  - Product use issue [Unknown]
  - Off label use [Unknown]

NARRATIVE: CASE EVENT DATE: 20150101
